FAERS Safety Report 9904681 (Version 2)
Quarter: 2014Q2

REPORT INFORMATION
  Report Type: Spontaneous
  Country: US (occurrence: US)
  Receive Date: 20140218
  Receipt Date: 20140527
  Transmission Date: 20141212
  Serious: Yes (Hospitalization)
  Sender: FDA-Public Use
  Company Number: US-SA-2014SA019434

PATIENT
  Age: 49 Year
  Sex: Female
  Weight: 59 kg

DRUGS (3)
  1. HECTOROL [Suspect]
     Indication: HYPERPARATHYROIDISM SECONDARY
     Route: 042
     Dates: start: 20131228, end: 20140125
  2. HEPARIN [Concomitant]
     Dosage: DOSE:3000 UNIT(S)
     Dates: start: 20130221, end: 20140305
  3. EPOGEN [Concomitant]
     Indication: ANAEMIA
     Dosage: DOSE:3200 UNIT(S)
     Dates: start: 20140121, end: 20140127

REACTIONS (1)
  - Unresponsive to stimuli [Recovered/Resolved]
